FAERS Safety Report 14246259 (Version 1)
Quarter: 2017Q4

REPORT INFORMATION
  Report Type: Spontaneous
  Country: US (occurrence: US)
  Receive Date: 20171204
  Receipt Date: 20171204
  Transmission Date: 20180321
  Serious: Yes (Life-Threatening, Hospitalization, Other)
  Sender: FDA-Public Use
  Company Number: US-ACCORD-061604

PATIENT
  Age: 51 Year
  Sex: Female

DRUGS (1)
  1. ONDANSETRON [Suspect]
     Active Substance: ONDANSETRON
     Indication: PRODUCT USED FOR UNKNOWN INDICATION
     Dosage: INFUSED
     Route: 042

REACTIONS (3)
  - Pulse absent [Recovered/Resolved]
  - Torsade de pointes [Recovered/Resolved]
  - Left ventricular dysfunction [Recovering/Resolving]
